FAERS Safety Report 9308151 (Version 8)
Quarter: 2016Q2

REPORT INFORMATION
  Report Type: Spontaneous
  Country: JP (occurrence: JP)
  Receive Date: 20130524
  Receipt Date: 20160603
  Transmission Date: 20160815
  Serious: Yes (Life-Threatening, Hospitalization, Disabling, Other)
  Sender: FDA-Public Use
  Company Number: JP-SANOFI-AVENTIS-2013SA050998

PATIENT
  Age: 67 Year
  Sex: Male
  Weight: 57.9 kg

DRUGS (7)
  1. MIYA-BM [Concomitant]
     Active Substance: CLOSTRIDIUM BUTYRICUM SPORES STRAIN M-55
     Route: 048
     Dates: end: 20130508
  2. PLAVIX [Suspect]
     Active Substance: CLOPIDOGREL BISULFATE
     Indication: CEREBRAL INFARCTION
     Route: 048
     Dates: start: 20130203, end: 20130508
  3. CRAVIT [Concomitant]
     Active Substance: LEVOFLOXACIN
     Route: 048
     Dates: end: 20130508
  4. FAMOTIDINE. [Concomitant]
     Active Substance: FAMOTIDINE
     Route: 048
     Dates: end: 20130508
  5. ASPIRIN. [Concomitant]
     Active Substance: ASPIRIN
     Indication: LACUNAR INFARCTION
     Dosage: STARTED TAKING ASPIRIN IN JAN OF YEAR X
     Dates: end: 20130203
  6. TAMSULOSIN [Concomitant]
     Active Substance: TAMSULOSIN
     Dosage: DOSE: 0.1 (UNIT NOT PROVIDED)
     Route: 048
     Dates: end: 20130508
  7. ALBUMIN TANNATE [Concomitant]
     Active Substance: ALBUMIN BOVINE\TANNIC ACID
     Route: 048
     Dates: end: 20130508

REACTIONS (42)
  - Aspartate aminotransferase increased [Recovering/Resolving]
  - Ocular icterus [Recovering/Resolving]
  - Complement factor C3 decreased [Recovered/Resolved]
  - Nausea [Recovering/Resolving]
  - Thrombotic microangiopathy [Recovered/Resolved]
  - Chromaturia [Recovering/Resolving]
  - Blood pressure decreased [Recovering/Resolving]
  - Haptoglobin decreased [Recovering/Resolving]
  - Face oedema [Recovering/Resolving]
  - Oedema [Recovering/Resolving]
  - Blood urea increased [Recovering/Resolving]
  - Haematuria [Recovering/Resolving]
  - Blood creatinine increased [Recovering/Resolving]
  - Blood lactate dehydrogenase increased [Recovering/Resolving]
  - Red cell fragmentation syndrome [Recovering/Resolving]
  - Platelet count decreased [Recovering/Resolving]
  - Purpura [Recovered/Resolved]
  - Blood bilirubin increased [Recovering/Resolving]
  - Haemoglobin decreased [Recovering/Resolving]
  - Thrombotic thrombocytopenic purpura [Recovering/Resolving]
  - Thrombocytopenia [Recovering/Resolving]
  - Complement factor decreased [Recovered/Resolved]
  - Urine output decreased [Recovering/Resolving]
  - Oliguria [Recovering/Resolving]
  - Pleural effusion [Recovering/Resolving]
  - Ascites [Recovering/Resolving]
  - Haemolytic anaemia [Recovering/Resolving]
  - Rash [Recovering/Resolving]
  - Decreased appetite [Recovering/Resolving]
  - Hypokinesia [Recovering/Resolving]
  - Haemolytic uraemic syndrome [Recovering/Resolving]
  - C-reactive protein increased [Recovered/Resolved]
  - Hyperbilirubinaemia [Recovering/Resolving]
  - Bilirubin conjugated increased [Recovering/Resolving]
  - Reticulocyte count increased [Recovering/Resolving]
  - Red blood cell count decreased [Recovering/Resolving]
  - Acute kidney injury [Recovering/Resolving]
  - Fatigue [Recovering/Resolving]
  - Generalised oedema [Recovering/Resolving]
  - Proteinuria [Recovering/Resolving]
  - Blood chloride increased [Recovering/Resolving]
  - Cardiomegaly [Recovering/Resolving]

NARRATIVE: CASE EVENT DATE: 20130508
